FAERS Safety Report 4784660-1 (Version None)
Quarter: 2005Q3

REPORT INFORMATION
  Report Type: 
  Country: None (occurrence: None)
  Receive Date: 20050928
  Receipt Date: 20050623
  Transmission Date: 20060218
  Serious: Yes (Hospitalization)
  Sender: FDA-Public Use
  Company Number: Q05-044

PATIENT
  Age: 72 Year
  Sex: Female
  Weight: 79 kg

DRUGS (10)
  1. QUADRAMET [Suspect]
     Indication: BREAST CANCER METASTATIC
     Dates: start: 20041104, end: 20050601
  2. ZESTORETIC [Concomitant]
  3. METFORMIN [Concomitant]
  4. ACTOS [Concomitant]
  5. AREDIA [Concomitant]
  6. PROCHLORPERAZINE [Concomitant]
  7. GLYBURIDE [Concomitant]
  8. PERCOCET [Concomitant]
  9. TIMOLOL MALEATE [Concomitant]
  10. TRAVATAN [Concomitant]

REACTIONS (3)
  - BONE MARROW DISORDER [None]
  - MYELOFIBROSIS [None]
  - MYELOID METAPLASIA [None]
